FAERS Safety Report 8885974 (Version 2)
Quarter: 2012Q4

REPORT INFORMATION
  Report Type: 
  Country: US (occurrence: US)
  Receive Date: 20121105
  Receipt Date: 20121120
  Transmission Date: 20130627
  Serious: No
  Sender: FDA-Public Use
  Company Number: US-PFIZER INC-2012272286

PATIENT
  Age: 56 Year
  Sex: Female
  Weight: 56.7 kg

DRUGS (7)
  1. CHANTIX [Suspect]
     Indication: SMOKING CESSATION THERAPY
     Dosage: 0.5 mg, 2x/day (Two times a day)
     Route: 048
     Dates: start: 20121022
  2. NICORETTE [Suspect]
     Dosage: UNK
  3. NICORETTE [Suspect]
     Dosage: UNK
  4. ZOLOFT [Concomitant]
     Indication: BIPOLAR DISORDER
     Dosage: 100 mg, 1x/day (daily in the morning)
  5. AMBIEN [Concomitant]
     Indication: HEADACHE
     Dosage: 10 mg, as needed
  6. SEROQUEL [Concomitant]
     Indication: BRAIN INJURY
     Dosage: 800 mg, 1x/day (daily at night)
  7. HYDROCODONE [Concomitant]
     Indication: RHEUMATOID ARTHRITIS
     Dosage: 10/325 mg, 3x/day (three times a day)

REACTIONS (5)
  - Nervousness [Recovered/Resolved]
  - Feeling abnormal [Recovered/Resolved]
  - Abnormal behaviour [Recovered/Resolved]
  - Anxiety [Recovered/Resolved]
  - Emotional disorder [Recovered/Resolved]
